FAERS Safety Report 4913624-X (Version None)
Quarter: 2006Q1

REPORT INFORMATION
  Report Type: 
  Country: None (occurrence: None)
  Receive Date: 20060216
  Receipt Date: 20060123
  Transmission Date: 20060701
  Serious: Yes (Other)
  Sender: FDA-Public Use
  Company Number: US-AMGEN-KDL166078

PATIENT
  Sex: Male

DRUGS (3)
  1. KINERET [Suspect]
     Indication: RHEUMATOID ARTHRITIS
     Route: 058
     Dates: start: 20030906
  2. METHOTREXATE [Concomitant]
     Route: 048
     Dates: start: 19990101
  3. ARAVA [Concomitant]

REACTIONS (1)
  - DEEP VEIN THROMBOSIS [None]
